FAERS Safety Report 17972813 (Version 1)
Quarter: 2020Q3

REPORT INFORMATION
  Report Type: Spontaneous
  Country: US (occurrence: US)
  Receive Date: 20200701
  Receipt Date: 20200701
  Transmission Date: 20201103
  Serious: Yes (Hospitalization)
  Sender: FDA-Public Use
  Company Number: None

PATIENT
  Age: 70 Year
  Sex: Female

DRUGS (3)
  1. XELODA [Concomitant]
     Active Substance: CAPECITABINE
     Dates: start: 20200617
  2. XELODA [Suspect]
     Active Substance: CAPECITABINE
     Indication: NEOPLASM MALIGNANT
     Route: 048
  3. XELODA [Suspect]
     Active Substance: CAPECITABINE
     Indication: HYPERTENSION
     Route: 048

REACTIONS (4)
  - Nausea [None]
  - Vomiting [None]
  - Dehydration [None]
  - Blood potassium decreased [None]

NARRATIVE: CASE EVENT DATE: 20200601
